FAERS Safety Report 16513218 (Version 1)
Quarter: 2019Q3

REPORT INFORMATION
  Report Type: Spontaneous
  Country: NL (occurrence: NL)
  Receive Date: 20190702
  Receipt Date: 20190702
  Transmission Date: 20191004
  Serious: Yes (Other)
  Sender: FDA-Public Use
  Company Number: NL-PFIZER INC-2019275338

PATIENT
  Age: 25 Year
  Sex: Female

DRUGS (2)
  1. IBUPROFEN. [Suspect]
     Active Substance: IBUPROFEN
     Indication: DENTAL OPERATION
     Dosage: UNK
  2. ETHINYLESTRADIOL/LEVONORGESTREL [Concomitant]
     Dosage: UNK

REACTIONS (2)
  - Urticaria [Unknown]
  - Angioedema [Recovered/Resolved]
